FAERS Safety Report 15121880 (Version 2)
Quarter: 2019Q1

REPORT INFORMATION
  Report Type: Spontaneous
  Country: US (occurrence: US)
  Receive Date: 20180709
  Receipt Date: 20190107
  Transmission Date: 20190417
  Serious: Yes (Hospitalization)
  Sender: FDA-Public Use
  Company Number: US-LUNDBECK-DKLU2051105

PATIENT
  Age: 78 Year
  Sex: Female

DRUGS (5)
  1. NORTHERA [Suspect]
     Active Substance: DROXIDOPA
     Indication: ORTHOSTATIC HYPOTENSION
     Dosage: SCHEDULE B
     Route: 048
     Dates: start: 20180612
  2. NORTHERA [Suspect]
     Active Substance: DROXIDOPA
     Indication: SYNCOPE
     Route: 048
  3. NORTHERA [Suspect]
     Active Substance: DROXIDOPA
     Route: 048
  4. NORTHERA [Suspect]
     Active Substance: DROXIDOPA
     Route: 048
  5. NORTHERA [Suspect]
     Active Substance: DROXIDOPA
     Indication: PARKINSON^S DISEASE
     Dosage: SCHEDULE B
     Route: 048
     Dates: start: 20180615

REACTIONS (4)
  - Loss of consciousness [Recovered/Resolved]
  - Blood pressure fluctuation [Unknown]
  - Unresponsive to stimuli [Unknown]
  - Blood pressure systolic increased [Recovered/Resolved]

NARRATIVE: CASE EVENT DATE: 20180701
